FAERS Safety Report 8731046 (Version 2)
Quarter: 2012Q4

REPORT INFORMATION
  Report Type: 
  Country: CO (occurrence: CO)
  Receive Date: 20120820
  Receipt Date: 20121128
  Transmission Date: 20130627
  Serious: Yes (Disabling, Other)
  Sender: FDA-Public Use
  Company Number: CO-AMGEN-COLSP2012051867

PATIENT
  Age: 56 Year
  Sex: Female

DRUGS (1)
  1. ENBREL [Suspect]
     Indication: PSORIATIC ARTHROPATHY
     Dosage: 50 mg, weekly
     Route: 058
     Dates: start: 2008

REACTIONS (7)
  - Leg amputation [Not Recovered/Not Resolved]
  - Spinal disorder [Not Recovered/Not Resolved]
  - Wheelchair user [Unknown]
  - Skin discolouration [Not Recovered/Not Resolved]
  - Pain [Not Recovered/Not Resolved]
  - Drug ineffective [Unknown]
  - Osteoporosis [Not Recovered/Not Resolved]
